FAERS Safety Report 5080065-7 (Version None)
Quarter: 2006Q3

REPORT INFORMATION
  Report Type: 
  Country: None (occurrence: None)
  Receive Date: 20060815
  Receipt Date: 20060807
  Transmission Date: 20061208
  Serious: Yes (Hospitalization, Other)
  Sender: FDA-Public Use
  Company Number: US-JNJFOC-20060802132

PATIENT
  Sex: Female
  Weight: 90.72 kg

DRUGS (2)
  1. ORTHO EVRA [Suspect]
     Indication: CONTRACEPTION
     Dates: start: 20050801
  2. GLUCOPHAGE [Concomitant]
     Indication: POLYCYSTIC OVARIES

REACTIONS (1)
  - OVARIAN TORSION [None]
